FAERS Safety Report 9481620 (Version 2)
Quarter: 2013Q3

REPORT INFORMATION
  Report Type: Spontaneous
  Country: US (occurrence: US)
  Receive Date: 20130828
  Receipt Date: 20130828
  Transmission Date: 20140515
  Serious: Yes (Other)
  Sender: FDA-Public Use
  Company Number: US-AMGEN-KDL159157

PATIENT
  Age: 45 Year
  Sex: Female

DRUGS (1)
  1. ENBREL [Suspect]
     Indication: PSORIASIS
     Dosage: 50 MG, 2 TIMES/WK
     Route: 058
     Dates: start: 20050301

REACTIONS (6)
  - Pustular psoriasis [Unknown]
  - Contusion [Unknown]
  - Psoriasis [Unknown]
  - Condition aggravated [Unknown]
  - Cellulitis [Not Recovered/Not Resolved]
  - Arthropod bite [Not Recovered/Not Resolved]
